FAERS Safety Report 10434420 (Version 3)
Quarter: 2015Q2

REPORT INFORMATION
  Report Type: Spontaneous
  Country: BR (occurrence: BR)
  Receive Date: 20140905
  Receipt Date: 20150514
  Transmission Date: 20150821
  Serious: Yes (Other)
  Sender: FDA-Public Use
  Company Number: BR-ABBVIE-14P-020-1280505-00

PATIENT
  Age: 75 Year
  Sex: Female
  Weight: 58 kg

DRUGS (12)
  1. CENTRUM [Concomitant]
     Active Substance: VITAMINS
     Indication: VITAMIN SUPPLEMENTATION
     Route: 048
     Dates: start: 2010
  2. OMEPRAZOLE. [Concomitant]
     Active Substance: OMEPRAZOLE
     Indication: PROPHYLAXIS
     Dosage: 2 CAPSULES PER DAY (40 MG) AND 1 CAPSULE AT NIGHT, WHEN NEEDED
     Route: 048
  3. QUESTRAN [Concomitant]
     Active Substance: CHOLESTYRAMINE
     Indication: VITAMIN SUPPLEMENTATION
  4. CREON [Suspect]
     Active Substance: PANCRELIPASE AMYLASE\PANCRELIPASE LIPASE\PANCRELIPASE PROTEASE
     Route: 048
  5. CREON [Suspect]
     Active Substance: PANCRELIPASE AMYLASE\PANCRELIPASE LIPASE\PANCRELIPASE PROTEASE
     Dosage: WHEN SHE WANTS TO EAT SOMETHING DIFFERENT
     Route: 048
  6. QUESTRAN [Concomitant]
     Active Substance: CHOLESTYRAMINE
     Indication: BLOOD PRESSURE
  7. DONAREN [Concomitant]
     Active Substance: TRAZODONE HYDROCHLORIDE
     Indication: RELAXATION THERAPY
     Dosage: 50 MILLIGRAM; BEFORE SLEEP
     Route: 048
     Dates: start: 2012
  8. DONAREN [Concomitant]
     Active Substance: TRAZODONE HYDROCHLORIDE
     Indication: SLEEP DISORDER THERAPY
  9. OSTEONUTRI [Concomitant]
     Indication: BONE DISORDER
     Route: 048
     Dates: start: 201402
  10. CREON [Suspect]
     Active Substance: PANCRELIPASE AMYLASE\PANCRELIPASE LIPASE\PANCRELIPASE PROTEASE
     Route: 048
  11. QUESTRAN [Concomitant]
     Active Substance: CHOLESTYRAMINE
     Indication: STEATORRHOEA
     Dosage: DAILY DOSE: 1 SACHET, 3 MONTHS AFTER THE SURGERY
     Route: 048
     Dates: start: 2005, end: 201502
  12. CREON [Suspect]
     Active Substance: PANCRELIPASE AMYLASE\PANCRELIPASE LIPASE\PANCRELIPASE PROTEASE
     Indication: PANCREATIC DISORDER
     Dosage: DAILY DOSE 4 CAPSULE; BEFORE LUNCH/ BEFORE DINNER
     Route: 048
     Dates: start: 200606

REACTIONS (35)
  - Depression [Unknown]
  - Intestinal polyp [Not Recovered/Not Resolved]
  - Anorectal disorder [Unknown]
  - Dyspepsia [Not Recovered/Not Resolved]
  - Balance disorder [Not Recovered/Not Resolved]
  - Abdominal distension [Unknown]
  - Weight increased [Unknown]
  - Fluid retention [Recovered/Resolved]
  - Osteopenia [Unknown]
  - Steatorrhoea [Not Recovered/Not Resolved]
  - Abdominal pain [Unknown]
  - Anorectal swelling [Unknown]
  - Blood glucose increased [Recovered/Resolved]
  - Blood pressure abnormal [Recovering/Resolving]
  - Head injury [Unknown]
  - Weight decreased [Recovered/Resolved]
  - Spinal fracture [Not Recovered/Not Resolved]
  - Diarrhoea [Unknown]
  - Fall [Unknown]
  - Pancreatic atrophy [Unknown]
  - Gastrooesophageal reflux disease [Not Recovered/Not Resolved]
  - Flatulence [Not Recovered/Not Resolved]
  - Gastritis [Not Recovered/Not Resolved]
  - Fall [Not Recovered/Not Resolved]
  - Joint dislocation [Recovering/Resolving]
  - Blood cholesterol increased [Not Recovered/Not Resolved]
  - Pain [Not Recovered/Not Resolved]
  - Kyphosis [Not Recovered/Not Resolved]
  - Fatigue [Unknown]
  - Steatorrhoea [Not Recovered/Not Resolved]
  - Fracture [Unknown]
  - Dizziness [Not Recovered/Not Resolved]
  - Abdominal pain [Not Recovered/Not Resolved]
  - Dyspnoea [Unknown]
  - Fall [Unknown]

NARRATIVE: CASE EVENT DATE: 2012
